FAERS Safety Report 10890067 (Version 3)
Quarter: 2015Q3

REPORT INFORMATION
  Report Type: Report from Study
  Country: CL (occurrence: CL)
  Receive Date: 20150305
  Receipt Date: 20150820
  Transmission Date: 20151125
  Serious: Yes (Death, Hospitalization, Other)
  Sender: FDA-Public Use
  Company Number: CL-ROCHE-1475538

PATIENT
  Age: 62 Year
  Sex: Female
  Weight: 65 kg

DRUGS (5)
  1. MABTHERA [Suspect]
     Active Substance: RITUXIMAB
     Indication: NON-HODGKIN^S LYMPHOMA
     Route: 042
     Dates: start: 20140828, end: 20150405
  2. DOXORUBICINE [Suspect]
     Active Substance: DOXORUBICIN
     Indication: NON-HODGKIN^S LYMPHOMA
     Route: 042
     Dates: start: 20140828, end: 20150405
  3. VINCRISTIN [Suspect]
     Active Substance: VINCRISTINE
     Indication: NON-HODGKIN^S LYMPHOMA
     Route: 042
     Dates: start: 20140828, end: 20150405
  4. ACETAMINOPHEN. [Concomitant]
     Active Substance: ACETAMINOPHEN
     Route: 065
  5. CYCLOPHOSPHAMIDE. [Suspect]
     Active Substance: CYCLOPHOSPHAMIDE
     Indication: NON-HODGKIN^S LYMPHOMA
     Route: 042
     Dates: start: 20140828, end: 20150405

REACTIONS (13)
  - Staphylococcal infection [Unknown]
  - Drug ineffective [Unknown]
  - Pain [Recovered/Resolved]
  - Drug ineffective [Unknown]
  - Death [Fatal]
  - Immune system disorder [Not Recovered/Not Resolved]
  - Nodule [Not Recovered/Not Resolved]
  - Wound [Not Recovered/Not Resolved]
  - Epistaxis [Recovered/Resolved]
  - Pyrexia [Unknown]
  - White blood cell count decreased [Recovered/Resolved]
  - Ill-defined disorder [Unknown]
  - Skin discolouration [Not Recovered/Not Resolved]

NARRATIVE: CASE EVENT DATE: 201409
